FAERS Safety Report 7991137-9 (Version None)
Quarter: 2011Q4

REPORT INFORMATION
  Report Type: 
  Country: None (occurrence: None)
  Receive Date: 20111219
  Receipt Date: 20111214
  Transmission Date: 20120403
  Serious: Yes (Death, Other)
  Sender: FDA-Public Use
  Company Number: CH-PFIZER INC-2011304556

PATIENT
  Age: 65 Year
  Sex: Male

DRUGS (2)
  1. PIPERACILLIN AND TAZOBACTAM [Concomitant]
  2. METHYLPREDNISOLONE [Suspect]
     Dosage: 2 MG/KG, PER DAY

REACTIONS (1)
  - ZYGOMYCOSIS [None]
